FAERS Safety Report 7600115-0 (Version None)
Quarter: 2011Q3

REPORT INFORMATION
  Report Type: 
  Country: None (occurrence: None)
  Receive Date: 20110711
  Receipt Date: 20110628
  Transmission Date: 20111222
  Serious: Yes (Hospitalization, Other)
  Sender: FDA-Public Use
  Company Number: US-ELI_LILLY_AND_COMPANY-US201105004063

PATIENT
  Sex: Female

DRUGS (4)
  1. FORTEO [Suspect]
     Dosage: 20 UG, QD
     Route: 058
     Dates: end: 20110501
  2. ALPRAZOLAM [Concomitant]
  3. FORTEO [Suspect]
     Indication: OSTEOPOROSIS
     Dosage: 20 UG, DAILY (1/D)
     Route: 058
     Dates: start: 20110419
  4. BONIVA [Concomitant]

REACTIONS (6)
  - PARATHYROID TUMOUR [None]
  - OVERDOSE [None]
  - FATIGUE [None]
  - NERVOUSNESS [None]
  - LABORATORY TEST ABNORMAL [None]
  - BLOOD CALCIUM INCREASED [None]
